FAERS Safety Report 5829772-6 (Version None)
Quarter: 2008Q3

REPORT INFORMATION
  Report Type: 
  Country: None (occurrence: None)
  Receive Date: 20080729
  Receipt Date: 20080716
  Transmission Date: 20090109
  Serious: Yes (Hospitalization, Other)
  Sender: FDA-Public Use
  Company Number: 2008BI017403

PATIENT
  Age: 39 Year
  Sex: Female
  Weight: 104.3273 kg

DRUGS (1)
  1. TYSABRI [Suspect]
     Indication: MULTIPLE SCLEROSIS
     Dosage: 300 MG; QM; IV
     Route: 042
     Dates: start: 20071115, end: 20080701

REACTIONS (2)
  - NEUTROPHIL COUNT DECREASED [None]
  - THYROID CANCER [None]
